FAERS Safety Report 5372318-X (Version None)
Quarter: 2007Q2

REPORT INFORMATION
  Report Type: 
  Country: None (occurrence: None)
  Receive Date: 20070627
  Receipt Date: 20070419
  Transmission Date: 20071010
  Serious: No
  Sender: FDA-Public Use
  Company Number: US-BRISTOL-MYERS SQUIBB COMPANY-13755699

PATIENT
  Sex: Female

DRUGS (1)
  1. BARACLUDE [Suspect]
     Indication: HEPATITIS B

REACTIONS (3)
  - ALANINE AMINOTRANSFERASE INCREASED [None]
  - NAUSEA [None]
  - VOMITING [None]
